FAERS Safety Report 20068659 (Version 3)
Quarter: 2022Q3

REPORT INFORMATION
  Report Type: Spontaneous
  Country: CN (occurrence: CN)
  Receive Date: 20211115
  Receipt Date: 20220818
  Transmission Date: 20221027
  Serious: Yes (Other)
  Sender: FDA-Public Use
  Company Number: CN-ABBVIE-21K-035-4157423-00

PATIENT
  Age: 48 Year
  Sex: Male
  Weight: 79 kg

DRUGS (3)
  1. VALPROATE SODIUM [Suspect]
     Active Substance: VALPROATE SODIUM
     Indication: Epilepsy
     Dosage: 333.3MG PLUS 145.14MG
     Route: 048
  2. VALPROATE SODIUM [Suspect]
     Active Substance: VALPROATE SODIUM
     Route: 048
     Dates: start: 202002
  3. VALPROATE SODIUM [Suspect]
     Active Substance: VALPROATE SODIUM
     Dosage: 333.3 MG + 145.14 MG, 1 DF
     Route: 048

REACTIONS (10)
  - Epilepsy [Unknown]
  - Seizure [Unknown]
  - Dyspepsia [Unknown]
  - Constipation [Unknown]
  - Palpitations [Unknown]
  - Product use issue [Unknown]
  - Intentional product misuse [Unknown]
  - Therapeutic response decreased [Unknown]
  - Loss of consciousness [Unknown]
  - Syncope [Unknown]

NARRATIVE: CASE EVENT DATE: 20190901
